FAERS Safety Report 21409982 (Version 1)
Quarter: 2022Q4

REPORT INFORMATION
  Report Type: Spontaneous
  Country: CN (occurrence: CN)
  Receive Date: 20221005
  Receipt Date: 20221005
  Transmission Date: 20230113
  Serious: Yes (Hospitalization)
  Sender: FDA-Public Use
  Company Number: CN-BAYER-2022A137566

PATIENT
  Age: 83 Year
  Sex: Female
  Weight: 52 kg

DRUGS (2)
  1. XARELTO [Interacting]
     Active Substance: RIVAROXABAN
     Indication: Venous thrombosis limb
     Dosage: 10 MG, BID
     Route: 048
     Dates: start: 20220909, end: 20220928
  2. CLOPIDOGREL [Interacting]
     Active Substance: CLOPIDOGREL BISULFATE
     Indication: Venous thrombosis limb
     Dosage: UNK
     Route: 048
     Dates: start: 20220909

REACTIONS (7)
  - Basal ganglia haemorrhage [Recovered/Resolved with Sequelae]
  - Dizziness [Recovered/Resolved with Sequelae]
  - Altered state of consciousness [Recovered/Resolved with Sequelae]
  - Glassy eyes [Recovered/Resolved with Sequelae]
  - Labelled drug-drug interaction medication error [Unknown]
  - Product prescribing issue [Unknown]
  - Incorrect dose administered [Unknown]

NARRATIVE: CASE EVENT DATE: 20220909
